FAERS Safety Report 5537104-6 (Version None)
Quarter: 2007Q4

REPORT INFORMATION
  Report Type: 
  Country: None (occurrence: None)
  Receive Date: 20071205
  Receipt Date: 20071205
  Transmission Date: 20080405
  Serious: Yes (Other)
  Sender: FDA-Public Use
  Company Number: None

PATIENT
  Age: 43 Year
  Sex: Female
  Weight: 61.2356 kg

DRUGS (2)
  1. CELEXA [Suspect]
     Dosage: 1 TABLET ONCE A DAY IV
     Route: 042
     Dates: start: 20020622, end: 20020822
  2. LEXAPRO [Suspect]
     Dosage: 1 TABLET NA IV
     Route: 042
     Dates: start: 20021010, end: 20021210

REACTIONS (9)
  - ALOPECIA [None]
  - ASTHENIA [None]
  - CONFUSIONAL STATE [None]
  - DECREASED ACTIVITY [None]
  - FIBROMYALGIA [None]
  - HYPOAESTHESIA [None]
  - INFLUENZA LIKE ILLNESS [None]
  - MUSCLE SPASMS [None]
  - MUSCULAR WEAKNESS [None]
